FAERS Safety Report 7968675-8 (Version None)
Quarter: 2011Q4

REPORT INFORMATION
  Report Type: 
  Country: None (occurrence: None)
  Receive Date: 20111209
  Receipt Date: 20111128
  Transmission Date: 20120403
  Serious: Yes (Hospitalization)
  Sender: FDA-Public Use
  Company Number: FR-GLAXOSMITHKLINE-B0765520A

PATIENT
  Sex: Female

DRUGS (8)
  1. ZOFRAN [Suspect]
     Indication: PREMEDICATION
     Route: 042
     Dates: start: 20111109, end: 20111109
  2. OXALIPLATIN [Concomitant]
     Dates: start: 20111109, end: 20111109
  3. ISOPTIN [Concomitant]
  4. SOLU-MEDROL [Suspect]
     Indication: PREMEDICATION
     Route: 042
     Dates: start: 20111109, end: 20111109
  5. CAMPTOSAR [Concomitant]
     Dates: start: 20111109
  6. LEUCOVORIN CALCIUM [Concomitant]
     Dates: start: 20111109
  7. FLUOROURACIL [Concomitant]
     Dates: start: 20111109, end: 20111109
  8. IRINOTECAN HCL [Concomitant]
     Dates: start: 20111109

REACTIONS (5)
  - CARDIOTOXICITY [None]
  - RECTAL CANCER RECURRENT [None]
  - PYREXIA [None]
  - CHILLS [None]
  - LIVEDO RETICULARIS [None]
